FAERS Safety Report 26179868 (Version 1)
Quarter: 2025Q4

REPORT INFORMATION
  Report Type: Spontaneous
  Country: EU (occurrence: EU)
  Receive Date: 20251219
  Receipt Date: 20251219
  Transmission Date: 20260118
  Serious: Yes (Other)
  Sender: ALEXION PHARMACEUTICALS
  Company Number: EU-AstraZeneca-CH-01011348A

PATIENT
  Age: 84 Year
  Sex: Male

DRUGS (1)
  1. ACALABRUTINIB [Suspect]
     Active Substance: ACALABRUTINIB
     Indication: Clinical trial participant
     Dosage: 10 MILLIGRAM, BID
     Route: 065
     Dates: start: 20160319

REACTIONS (12)
  - Leukopenia [Unknown]
  - Neutropenia [Unknown]
  - Hypothyroidism [Unknown]
  - Gastrointestinal perforation [Unknown]
  - Aspartate aminotransferase increased [Unknown]
  - Fatigue [Unknown]
  - Myalgia [Unknown]
  - Upper respiratory tract infection [Unknown]
  - Dizziness [Unknown]
  - Dyspepsia [Unknown]
  - Urinary tract infection [Unknown]
  - Swelling [Unknown]
